FAERS Safety Report 14913025 (Version 1)
Quarter: 2018Q2

REPORT INFORMATION
  Report Type: Spontaneous
  Country: MY (occurrence: MY)
  Receive Date: 20180518
  Receipt Date: 20180518
  Transmission Date: 20180711
  Serious: Yes (Hospitalization, Other)
  Sender: FDA-Public Use
  Company Number: MY-ROCHE-2122885

PATIENT
  Age: 41 Year
  Sex: Male

DRUGS (6)
  1. CARDIPRIN [Concomitant]
     Indication: MYOCARDIAL INFARCTION
     Route: 065
     Dates: start: 20180324, end: 20180328
  2. METALYSE [Suspect]
     Active Substance: TENECTEPLASE
     Indication: MYOCARDIAL INFARCTION
     Route: 042
     Dates: start: 20180324
  3. HEPARIN [Concomitant]
     Active Substance: HEPARIN SODIUM
     Indication: PERCUTANEOUS CORONARY INTERVENTION
     Route: 042
     Dates: start: 20180327
  4. GTN [Concomitant]
     Active Substance: NITROGLYCERIN
     Indication: PRODUCT USED FOR UNKNOWN INDICATION
     Route: 042
     Dates: start: 20180324, end: 20180328
  5. FONDAPARINUX [Concomitant]
     Active Substance: FONDAPARINUX
     Indication: MYOCARDIAL INFARCTION
     Route: 065
     Dates: start: 20180324, end: 20180328
  6. PLAVIX [Concomitant]
     Active Substance: CLOPIDOGREL BISULFATE
     Indication: MYOCARDIAL INFARCTION
     Route: 065
     Dates: start: 20180324, end: 20180328

REACTIONS (6)
  - Procedural pain [Unknown]
  - Cerebellar haemorrhage [Unknown]
  - Vision blurred [Unknown]
  - Chest pain [Unknown]
  - Electrocardiogram ST segment depression [Unknown]
  - Percutaneous coronary intervention [Unknown]

NARRATIVE: CASE EVENT DATE: 20180328
